FAERS Safety Report 20328186 (Version 1)
Quarter: 2022Q1

REPORT INFORMATION
  Report Type: Spontaneous
  Country: US (occurrence: US)
  Receive Date: 20220112
  Receipt Date: 20220112
  Transmission Date: 20220424
  Serious: Yes (Other)
  Sender: FDA-Public Use
  Company Number: US-PFIZER INC-2019261003

PATIENT
  Age: 61 Year

DRUGS (3)
  1. RAPAMUNE [Suspect]
     Active Substance: SIROLIMUS
     Indication: Heart transplant
     Dosage: 3 MG, DAILY [TAKE 1 MG DAILY AT NOON, TOTAL OF 3 MG DAILY]
  2. RAPAMUNE [Suspect]
     Active Substance: SIROLIMUS
     Dosage: 3 MG, DAILY [TAKE 2 MG DAILY AT NOON, TOTAL OF 3 MG DAILY]
  3. RAPAMUNE [Suspect]
     Active Substance: SIROLIMUS
     Dosage: 2 MG, DAILY

REACTIONS (5)
  - Abdominal hernia [Unknown]
  - Coronary artery disease [Unknown]
  - Depression [Unknown]
  - Off label use [Unknown]
  - Off label use [Unknown]
